FAERS Safety Report 7549385-8 (Version None)
Quarter: 2011Q2

REPORT INFORMATION
  Report Type: 
  Country: None (occurrence: None)
  Receive Date: 20110615
  Receipt Date: 20040603
  Transmission Date: 20111010
  Serious: Yes (Death)
  Sender: FDA-Public Use
  Company Number: PHHO2004JP08013

PATIENT
  Sex: Female

DRUGS (16)
  1. LOCHOLEST [Suspect]
     Indication: HYPERCHOLESTEROLAEMIA
     Dosage: 20 MG, QD
     Route: 048
     Dates: start: 20010202
  2. KINEDAK [Concomitant]
     Dosage: UNK
  3. GLYCORAN [Concomitant]
     Indication: DIABETES MELLITUS
     Dosage: UNK
  4. BASEN [Concomitant]
     Indication: DIABETES MELLITUS
     Dosage: UNK
  5. ANPLAG [Concomitant]
     Indication: ARTERIOSCLEROSIS OBLITERANS
     Dosage: UNK
  6. ELCITONIN [Concomitant]
     Dosage: UNK
  7. MECOBALAMIN [Concomitant]
     Indication: VERTIGO
     Dosage: UNK
  8. MUCOSTA [Concomitant]
     Dosage: UNK
  9. BUFFERIN [Concomitant]
     Indication: CEREBRAL INFARCTION
     Dosage: UNK
  10. PLETAL [Concomitant]
     Indication: ARTERIOSCLEROSIS OBLITERANS
     Dosage: UNK
  11. GLIMICRON [Concomitant]
     Indication: DIABETES MELLITUS
     Dosage: UNK
  12. PURSENNID [Concomitant]
     Indication: CONSTIPATION
     Dosage: UNK
  13. TOLBUTAMIDE [Concomitant]
     Dosage: UNK
  14. FERROUS CITRATE [Concomitant]
     Indication: IRON DEFICIENCY ANAEMIA
     Dosage: UNK
  15. CEROCRAL [Concomitant]
  16. LOCHOLEST [Suspect]
     Dosage: 30 MG, QD
     Route: 048
     Dates: start: 20020927

REACTIONS (1)
  - SUDDEN DEATH [None]
